FAERS Safety Report 14071954 (Version 1)
Quarter: 2017Q4

REPORT INFORMATION
  Report Type: Spontaneous
  Country: US (occurrence: US)
  Receive Date: 20171010
  Receipt Date: 20171010
  Transmission Date: 20180321
  Serious: No
  Sender: FDA-Public Use
  Company Number: None

PATIENT
  Age: 35 Year
  Sex: Female
  Weight: 79.4 kg

DRUGS (1)
  1. REMICADE [Suspect]
     Active Substance: INFLIXIMAB
     Indication: CROHN^S DISEASE
     Dosage: 600 MG EVERY 6 WEEKS; INTRAVENOUS DRIP?
     Route: 041
     Dates: start: 20170607, end: 20170830

REACTIONS (5)
  - Throat irritation [None]
  - Cough [None]
  - Lip swelling [None]
  - Pyrexia [None]
  - Abdominal pain [None]
